FAERS Safety Report 10443936 (Version 1)
Quarter: 2014Q3

REPORT INFORMATION
  Report Type: Spontaneous
  Country: US (occurrence: US)
  Receive Date: 20140910
  Receipt Date: 20140910
  Transmission Date: 20150326
  Serious: No
  Sender: FDA-Public Use
  Company Number: US-TARO-2013P1022269

PATIENT
  Sex: Female

DRUGS (1)
  1. WARFARIN SODIUM TABLETS USP 2MG [Suspect]
     Active Substance: WARFARIN SODIUM

REACTIONS (1)
  - Abdominal pain upper [Unknown]
